FAERS Safety Report 4392509-4 (Version None)
Quarter: 2004Q3

REPORT INFORMATION
  Report Type: 
  Country: None (occurrence: None)
  Receive Date: 20040702
  Receipt Date: 20040621
  Transmission Date: 20050211
  Serious: Yes (Hospitalization)
  Sender: FDA-Public Use
  Company Number: 8292

PATIENT
  Age: 55 Year
  Sex: Female

DRUGS (6)
  1. FLUOROURACIL [Suspect]
     Indication: COLON CANCER
  2. LEUCOVORIN CALCIUM [Suspect]
     Indication: COLON CANCER
  3. IRINOTECAN [Suspect]
     Indication: COLON CANCER
     Dosage: 320 MG ONCE IV
     Route: 042
     Dates: start: 20001108, end: 20001108
  4. CABERGOLINE [Concomitant]
  5. SELEGILINE HCL [Concomitant]
  6. TIBOLONE [Concomitant]

REACTIONS (5)
  - CATHETER RELATED INFECTION [None]
  - NAUSEA [None]
  - NEUTROPENIA [None]
  - PYREXIA [None]
  - VOMITING [None]
